FAERS Safety Report 16115916 (Version 1)
Quarter: 2019Q1

REPORT INFORMATION
  Report Type: Spontaneous
  Country: CN (occurrence: CN)
  Receive Date: 20190326
  Receipt Date: 20190326
  Transmission Date: 20190418
  Serious: Yes (Other)
  Sender: FDA-Public Use
  Company Number: CN-ROCHE-2284727

PATIENT
  Age: 63 Year
  Sex: Female

DRUGS (23)
  1. EXEMESTANE. [Suspect]
     Active Substance: EXEMESTANE
     Indication: METASTASIS
  2. PACLITAXEL. [Concomitant]
     Active Substance: PACLITAXEL
     Dosage: 2 CYCLES
     Route: 065
     Dates: start: 201805, end: 201806
  3. CYCLOPHOSPHAMIDE. [Concomitant]
     Active Substance: CYCLOPHOSPHAMIDE
     Indication: BREAST CANCER
     Dosage: 4 CYCLES
     Route: 065
     Dates: start: 2016, end: 201606
  4. CISPLATIN. [Concomitant]
     Active Substance: CISPLATIN
     Indication: BREAST CANCER
     Dosage: 2 CYCLES
     Route: 065
     Dates: start: 201801, end: 201802
  5. DOXORUBICIN HYDROCHLORIDE LIPOSOME [Concomitant]
     Active Substance: DOXORUBICIN HYDROCHLORIDE
     Indication: METASTASIS
  6. PACLITAXEL. [Concomitant]
     Active Substance: PACLITAXEL
     Indication: METASTASIS
     Dosage: 2 CYCLES;4 CYCLES
     Route: 065
     Dates: start: 201602, end: 201606
  7. FULVESTRANT. [Concomitant]
     Active Substance: FULVESTRANT
     Indication: BREAST CANCER
     Dosage: 3 CYCLES
     Route: 065
     Dates: start: 201802, end: 201805
  8. FULVESTRANT. [Concomitant]
     Active Substance: FULVESTRANT
     Indication: METASTASIS
  9. GEMCITABINE [Concomitant]
     Active Substance: GEMCITABINE\GEMCITABINE HYDROCHLORIDE
     Indication: METASTASIS
  10. CISPLATIN. [Concomitant]
     Active Substance: CISPLATIN
     Indication: METASTASIS
  11. XELODA [Suspect]
     Active Substance: CAPECITABINE
     Indication: BREAST CANCER
     Dosage: 6 CYCLES; 5 CYCLES
     Route: 065
     Dates: start: 201704, end: 201801
  12. EXEMESTANE. [Suspect]
     Active Substance: EXEMESTANE
     Indication: BREAST CANCER
     Route: 065
  13. EPIRUBICIN [Concomitant]
     Active Substance: EPIRUBICIN
     Indication: METASTASIS
  14. EPIRUBICIN [Concomitant]
     Active Substance: EPIRUBICIN
     Indication: BREAST CANCER
     Dosage: 2 CYCLES;4 CYCLES
     Route: 065
     Dates: start: 201602, end: 201606
  15. CYCLOPHOSPHAMIDE. [Concomitant]
     Active Substance: CYCLOPHOSPHAMIDE
     Indication: METASTASIS
  16. DOCETAXEL. [Concomitant]
     Active Substance: DOCETAXEL
     Indication: BREAST CANCER
     Dosage: 6 CYCLES
     Route: 065
     Dates: start: 201704, end: 201801
  17. GEMCITABINE [Concomitant]
     Active Substance: GEMCITABINE\GEMCITABINE HYDROCHLORIDE
     Indication: BREAST CANCER
     Dosage: 2 CYCLES
     Route: 065
     Dates: start: 201801, end: 201802
  18. EVEROLIMUS. [Suspect]
     Active Substance: EVEROLIMUS
     Indication: BREAST CANCER
     Route: 065
  19. LETROZOLE. [Concomitant]
     Active Substance: LETROZOLE
     Indication: METASTASIS
  20. DOCETAXEL. [Concomitant]
     Active Substance: DOCETAXEL
     Indication: METASTASIS
  21. XELODA [Suspect]
     Active Substance: CAPECITABINE
     Indication: METASTASIS
  22. LETROZOLE. [Concomitant]
     Active Substance: LETROZOLE
     Indication: BREAST CANCER
     Route: 065
     Dates: start: 201606, end: 201704
  23. DOXORUBICIN HYDROCHLORIDE LIPOSOME [Concomitant]
     Active Substance: DOXORUBICIN HYDROCHLORIDE
     Indication: BREAST CANCER
     Dosage: 2 CYCLES
     Route: 065
     Dates: start: 201805, end: 201806

REACTIONS (4)
  - Gallbladder polyp [Unknown]
  - Mouth ulceration [Unknown]
  - Cholecystitis chronic [Unknown]
  - Breath odour [Unknown]
